FAERS Safety Report 9993778 (Version 2)
Quarter: 2014Q1

REPORT INFORMATION
  Report Type: Spontaneous
  Country: US (occurrence: US)
  Receive Date: 20140310
  Receipt Date: 20140310
  Transmission Date: 20141002
  Serious: Yes (Disabling)
  Sender: FDA-Public Use
  Company Number: US-GE HEALTHCARE MEDICAL DIAGNOSTICS-OSCN-PR-0809S-0533

PATIENT
  Age: 54 Year
  Sex: Male

DRUGS (26)
  1. OMNISCAN [Suspect]
     Indication: HICCUPS
     Route: 042
     Dates: start: 20060913, end: 20060913
  2. OMNISCAN [Suspect]
     Indication: COUGH
     Route: 042
     Dates: start: 20050118, end: 20050118
  3. OMNISCAN [Suspect]
     Indication: HYPERTENSION
     Route: 042
     Dates: start: 20060630, end: 20060630
  4. OMNISCAN [Suspect]
     Indication: RENAL ARTERY STENOSIS
     Route: 042
     Dates: start: 20060701, end: 20060701
  5. OMNISCAN [Suspect]
     Indication: RENAL FAILURE
     Route: 042
     Dates: start: 20060810, end: 20060810
  6. OMNISCAN [Suspect]
     Indication: INFECTION
     Route: 042
     Dates: start: 20060912, end: 20060912
  7. OMNISCAN [Suspect]
     Indication: PAIN
     Route: 042
     Dates: start: 20040912, end: 20040912
  8. OMNISCAN [Suspect]
     Indication: SWELLING
  9. OMNISCAN [Suspect]
     Indication: DIABETES MELLITUS
  10. OMNISCAN [Suspect]
     Indication: OSTEOMYELITIS
  11. MAGNEVIST [Suspect]
     Indication: NAUSEA
     Route: 042
     Dates: start: 20010529, end: 20010529
  12. REGLAN [Concomitant]
     Indication: PRODUCT USED FOR UNKNOWN INDICATION
  13. ENBREL [Concomitant]
     Indication: PSORIASIS
     Dates: end: 200608
  14. HUMIRA [Concomitant]
     Indication: PSORIASIS
     Dates: end: 200608
  15. ASA [Concomitant]
     Indication: PRODUCT USED FOR UNKNOWN INDICATION
  16. NEXIUM [Concomitant]
     Indication: PRODUCT USED FOR UNKNOWN INDICATION
  17. PLAVIX [Concomitant]
     Indication: PRODUCT USED FOR UNKNOWN INDICATION
  18. SYNTHROID [Concomitant]
     Indication: PRODUCT USED FOR UNKNOWN INDICATION
  19. RENAGEL [Concomitant]
     Indication: PRODUCT USED FOR UNKNOWN INDICATION
  20. PRANDIN [Concomitant]
     Indication: PRODUCT USED FOR UNKNOWN INDICATION
  21. NEPHROCAPS [Concomitant]
     Indication: PRODUCT USED FOR UNKNOWN INDICATION
  22. GLYBURIDE [Concomitant]
     Indication: PRODUCT USED FOR UNKNOWN INDICATION
  23. ERYTHROPOIETIN [Concomitant]
     Indication: PRODUCT USED FOR UNKNOWN INDICATION
  24. KEFLEX [Concomitant]
     Indication: PRODUCT USED FOR UNKNOWN INDICATION
  25. PREDNISONE [Concomitant]
     Indication: PRODUCT USED FOR UNKNOWN INDICATION
  26. HYDROCORTISONE [Concomitant]
     Indication: PRODUCT USED FOR UNKNOWN INDICATION

REACTIONS (1)
  - Nephrogenic systemic fibrosis [Not Recovered/Not Resolved]
